FAERS Safety Report 13669241 (Version 5)
Quarter: 2018Q3

REPORT INFORMATION
  Report Type: Report from Study
  Country: JP (occurrence: JP)
  Receive Date: 20170620
  Receipt Date: 20180802
  Transmission Date: 20181010
  Serious: Yes (Hospitalization, Other)
  Sender: FDA-Public Use
  Company Number: JP-PFIZER INC-2017268903

PATIENT
  Age: 69 Year
  Sex: Female
  Weight: 37.3 kg

DRUGS (10)
  1. NEXIUM [Concomitant]
     Active Substance: ESOMEPRAZOLE MAGNESIUM
     Dosage: UNK
     Route: 048
  2. PREDNISOLONE. [Concomitant]
     Active Substance: PREDNISOLONE
     Dosage: 5 MG, DAILY
     Route: 048
     Dates: end: 20140529
  3. XELJANZ [Suspect]
     Active Substance: TOFACITINIB CITRATE
     Dosage: 5 MG, 2X/DAY
     Route: 048
     Dates: start: 20150525
  4. THEOPHYLLINE [Concomitant]
     Active Substance: THEOPHYLLINE ANHYDROUS
     Dosage: UNK
     Route: 048
  5. ETIZOLAM [Concomitant]
     Active Substance: ETIZOLAM
     Dosage: UNK
     Route: 048
  6. ZETIA [Concomitant]
     Active Substance: EZETIMIBE
     Dosage: UNK
     Route: 048
  7. PREDNISOLONE. [Concomitant]
     Active Substance: PREDNISOLONE
     Dosage: 3 MG, DAILY
     Route: 048
     Dates: start: 20140725
  8. ZOLPIDEM [Concomitant]
     Active Substance: ZOLPIDEM\ZOLPIDEM TARTRATE
     Dosage: UNK
     Route: 048
  9. XELJANZ [Suspect]
     Active Substance: TOFACITINIB CITRATE
     Indication: RHEUMATOID ARTHRITIS
     Dosage: 5 MG, 2X/DAY
     Route: 048
     Dates: start: 20140704, end: 20150501
  10. PREDNISOLONE. [Concomitant]
     Active Substance: PREDNISOLONE
     Dosage: 4 MG, DAILY
     Route: 048
     Dates: start: 20140530, end: 20140724

REACTIONS (1)
  - Cardiac failure acute [Recovering/Resolving]

NARRATIVE: CASE EVENT DATE: 20170517
